FAERS Safety Report 18010650 (Version 7)
Quarter: 2021Q4

REPORT INFORMATION
  Report Type: Other
  Country: CA (occurrence: CA)
  Receive Date: 20200711
  Receipt Date: 20211020
  Transmission Date: 20220303
  Serious: Yes (Death, Hospitalization, Other)
  Sender: FDA-Public Use
  Company Number: CA-TOLMAR, INC.-20CA021936

PATIENT
  Age: 64 Year
  Sex: Male

DRUGS (4)
  1. ELIGARD [Suspect]
     Active Substance: LEUPROLIDE ACETATE
     Indication: Prostate cancer
     Dosage: 22.5 MILLIGRAM, Q 3 MONTH
     Route: 058
     Dates: start: 20200924
  2. ELIGARD [Suspect]
     Active Substance: LEUPROLIDE ACETATE
     Dosage: 22.5 MILLIGRAM, Q 3 MONTH
     Route: 058
     Dates: start: 20180829
  3. ELIGARD [Suspect]
     Active Substance: LEUPROLIDE ACETATE
     Dosage: 22.5 MILLIGRAM, Q 3 MONTH
     Route: 058
     Dates: start: 20200702
  4. ELIGARD [Suspect]
     Active Substance: LEUPROLIDE ACETATE
     Indication: Product used for unknown indication
     Dosage: UNK

REACTIONS (12)
  - Pulmonary embolism [Fatal]
  - Pneumonia [Fatal]
  - Cardiac disorder [Fatal]
  - Tachycardia [Unknown]
  - Loss of consciousness [Unknown]
  - Urinary tract obstruction [Unknown]
  - Angina unstable [Recovered/Resolved]
  - Abdominal pain [Recovering/Resolving]
  - Post procedural haemorrhage [Unknown]
  - Cystitis radiation [Unknown]
  - Urinary retention [Unknown]
  - Haematuria [Unknown]

NARRATIVE: CASE EVENT DATE: 20200418
